FAERS Safety Report 6695218-1 (Version None)
Quarter: 2010Q2

REPORT INFORMATION
  Report Type: 
  Country: None (occurrence: None)
  Receive Date: 20100423
  Receipt Date: 20100413
  Transmission Date: 20101027
  Serious: Yes (Death, Life-Threatening)
  Sender: FDA-Public Use
  Company Number: JP-ABBOTT-10P-087-0623400-00

PATIENT
  Sex: Female

DRUGS (30)
  1. HUMIRA [Suspect]
     Indication: RHEUMATOID ARTHRITIS
     Route: 058
     Dates: start: 20090807, end: 20091126
  2. HUMIRA [Suspect]
     Route: 058
     Dates: start: 20100208, end: 20100222
  3. SALAZOSULFAPYRIDINE [Concomitant]
     Indication: RHEUMATOID ARTHRITIS
     Route: 048
     Dates: start: 20081016, end: 20100226
  4. ETIZOLAM [Concomitant]
     Indication: DRUG USE FOR UNKNOWN INDICATION
     Route: 048
     Dates: start: 20081016, end: 20100226
  5. BEZAFIBRATE [Concomitant]
     Indication: DRUG USE FOR UNKNOWN INDICATION
     Route: 048
     Dates: start: 20081016, end: 20100226
  6. AMLODIPINE BESYLATE [Concomitant]
     Indication: DRUG USE FOR UNKNOWN INDICATION
     Route: 048
     Dates: start: 20081016, end: 20100226
  7. LANSOPRAZOLE [Concomitant]
     Indication: PROPHYLAXIS
     Route: 048
     Dates: start: 20081016, end: 20100226
  8. LANSOPRAZOLE [Concomitant]
     Indication: ADVERSE EVENT
  9. GLIMEPIRIDE [Concomitant]
     Indication: DRUG USE FOR UNKNOWN INDICATION
     Route: 048
     Dates: start: 20081016, end: 20100226
  10. EPERISONE HYDROCHLORIDE [Concomitant]
     Indication: PROPHYLAXIS
     Route: 048
     Dates: start: 20081016, end: 20100226
  11. EPERISONE HYDROCHLORIDE [Concomitant]
     Indication: ADVERSE EVENT
  12. MISOPROSTOL [Concomitant]
     Indication: ADVERSE EVENT
     Route: 048
     Dates: start: 20081016, end: 20100226
  13. MISOPROSTOL [Concomitant]
     Indication: PROPHYLAXIS
  14. MOSAPRIDE CITRATE [Concomitant]
     Indication: PROPHYLAXIS
     Route: 048
     Dates: start: 20081016, end: 20100226
  15. MOSAPRIDE CITRATE [Concomitant]
     Indication: ADVERSE EVENT
  16. PREDNISOLONE [Concomitant]
     Indication: RHEUMATOID ARTHRITIS
     Route: 048
     Dates: start: 20081016, end: 20100226
  17. CANDESARTAN CILEXETIL [Concomitant]
     Indication: DRUG USE FOR UNKNOWN INDICATION
     Route: 048
     Dates: start: 20081016, end: 20100226
  18. SENNOSIDE [Concomitant]
     Indication: ADVERSE EVENT
     Route: 048
     Dates: start: 20080805, end: 20100226
  19. SENNOSIDE [Concomitant]
     Indication: PROPHYLAXIS
  20. ZOLPIDEM TARTRATE [Concomitant]
     Indication: DRUG USE FOR UNKNOWN INDICATION
     Route: 048
     Dates: start: 20080805, end: 20100226
  21. ASCORBIC ACID/CALCIUM PANTOTHENATE [Concomitant]
     Indication: PROPHYLAXIS
     Route: 048
     Dates: start: 20081016, end: 20100226
  22. ASCORBIC ACID/CALCIUM PANTOTHENATE [Concomitant]
     Indication: ADVERSE EVENT
  23. DICLOFENAC SODIUM [Concomitant]
     Indication: RHEUMATOID ARTHRITIS
     Route: 048
     Dates: start: 20081016, end: 20100226
  24. DICLOFENAC SODIUM [Concomitant]
     Dosage: 1 SHEET WHEN PAINFUL
     Route: 062
     Dates: start: 20081016, end: 20100226
  25. REBAMIPIDE [Concomitant]
     Indication: ADVERSE EVENT
     Dosage: WHEN PAINFUL
     Route: 048
     Dates: start: 20081016, end: 20100226
  26. REBAMIPIDE [Concomitant]
     Indication: PROPHYLAXIS
     Route: 048
     Dates: start: 20090319, end: 20100226
  27. SODIUM RISEDRONATE HYDRATE [Concomitant]
     Indication: PROPHYLAXIS
     Dosage: 17.5MG/WEEK
     Route: 048
     Dates: start: 20081016, end: 20100226
  28. SODIUM RISEDRONATE HYDRATE [Concomitant]
     Indication: ADVERSE EVENT
  29. CELECOXIB [Concomitant]
     Indication: RHEUMATOID ARTHRITIS
     Route: 048
     Dates: start: 20090319, end: 20100226
  30. FLURBIPROFEN [Concomitant]
     Indication: RHEUMATOID ARTHRITIS
     Dosage: 1 SHEET WHEN PAINFUL
     Route: 062
     Dates: start: 20091016, end: 20100226

REACTIONS (5)
  - BILE DUCT CANCER STAGE III [None]
  - GALLBLADDER CANCER [None]
  - JAUNDICE [None]
  - MALIGNANT NEOPLASM PROGRESSION [None]
  - METASTASES TO LIVER [None]
